FAERS Safety Report 8971007 (Version 6)
Quarter: 2013Q2

REPORT INFORMATION
  Report Type: Spontaneous
  Country: US (occurrence: US)
  Receive Date: 20121217
  Receipt Date: 20130617
  Transmission Date: 20140414
  Serious: Yes (Other)
  Sender: FDA-Public Use
  Company Number: US-BAYER-2012-131088

PATIENT
  Age: 76 Year
  Sex: Male
  Weight: 85.26 kg

DRUGS (5)
  1. ALEVE CAPLET/TABLET,MIDOL EXTENDED RELIEF CAPLET [Suspect]
     Indication: MUSCULOSKELETAL STIFFNESS
     Dosage: 2 DF, PRN
     Route: 048
     Dates: start: 2011, end: 20121208
  2. ALEVE CAPLET/TABLET,MIDOL EXTENDED RELIEF CAPLET [Suspect]
     Indication: PAIN
  3. DILTIAZEM [Concomitant]
     Dosage: 2 DF, QD
  4. PRAVASTATIN [Concomitant]
     Dosage: 40 MG, QD
  5. ADVIL [Concomitant]
     Indication: PAIN
     Dosage: UNK UNK, PRN
     Route: 048
     Dates: end: 201212

REACTIONS (27)
  - Urinary retention [Recovered/Resolved]
  - Urinary retention [Recovered/Resolved]
  - Constipation [Recovered/Resolved]
  - Erythema multiforme [Recovered/Resolved]
  - Swelling face [Recovered/Resolved]
  - Lip swelling [Recovered/Resolved]
  - Rash macular [Recovered/Resolved]
  - Swelling face [Recovered/Resolved]
  - Dermatitis [Recovered/Resolved]
  - Oral mucosal blistering [Recovered/Resolved]
  - Eye swelling [Recovered/Resolved]
  - Urticaria [Recovered/Resolved]
  - Proctitis [Recovered/Resolved]
  - Eye irritation [Recovered/Resolved]
  - Penile swelling [Recovered/Resolved]
  - Discomfort [Recovered/Resolved]
  - Scar [Recovered/Resolved]
  - Erythema multiforme [Recovered/Resolved]
  - Dermatitis [Recovered/Resolved]
  - Rash macular [Recovered/Resolved]
  - Oral mucosal blistering [Recovered/Resolved]
  - Eye swelling [Recovered/Resolved]
  - Urticaria [Recovered/Resolved]
  - Proctitis [Recovered/Resolved]
  - Eye irritation [Recovered/Resolved]
  - Penile swelling [Recovered/Resolved]
  - Lip swelling [Recovered/Resolved]
